FAERS Safety Report 7190118-5 (Version None)
Quarter: 2010Q4

REPORT INFORMATION
  Report Type: 
  Country: None (occurrence: None)
  Receive Date: 20101223
  Receipt Date: 20101215
  Transmission Date: 20110411
  Serious: No
  Sender: FDA-Public Use
  Company Number: US-JNJFOC-20101207532

PATIENT
  Sex: Female
  Weight: 68.04 kg

DRUGS (6)
  1. FENTANYL-100 [Suspect]
     Indication: MULTIPLE SCLEROSIS
     Dosage: NDC#: 0781-7244-55
     Route: 062
  2. FENTANYL-100 [Suspect]
     Indication: SYSTEMIC LUPUS ERYTHEMATOSUS
     Dosage: NDC#: 0781-7244-55
     Route: 062
  3. NEURONTIN [Concomitant]
     Indication: NEURALGIA
     Route: 048
  4. HYDROCODONE BITARTRATE [Concomitant]
     Indication: BREAKTHROUGH PAIN
     Dosage: 10/325 MG
     Route: 048
  5. LASIX [Concomitant]
     Indication: FLUID RETENTION
     Route: 048
  6. PREDNISONE [Concomitant]
     Indication: PAIN
     Route: 048

REACTIONS (9)
  - BELLIGERENCE [None]
  - DIZZINESS [None]
  - DRUG DOSE OMISSION [None]
  - DYSARTHRIA [None]
  - FEELING ABNORMAL [None]
  - MIOSIS [None]
  - OVERDOSE [None]
  - PRODUCT ODOUR ABNORMAL [None]
  - THINKING ABNORMAL [None]
